FAERS Safety Report 18809633 (Version 1)
Quarter: 2021Q1

REPORT INFORMATION
  Report Type: Spontaneous
  Country: US (occurrence: US)
  Receive Date: 20210129
  Receipt Date: 20210129
  Transmission Date: 20210419
  Serious: Yes (Other)
  Sender: FDA-Public Use
  Company Number: US-TEVA-2021-US-1875032

PATIENT
  Sex: Female

DRUGS (1)
  1. AUSTEDO [Suspect]
     Active Substance: DEUTETRABENAZINE
     Route: 065

REACTIONS (6)
  - Insomnia [Unknown]
  - Depression [Unknown]
  - Mood swings [Unknown]
  - Restlessness [Unknown]
  - Crying [Unknown]
  - Suicidal ideation [Unknown]
